FAERS Safety Report 4612558-8 (Version None)
Quarter: 2005Q1

REPORT INFORMATION
  Report Type: 
  Country: None (occurrence: None)
  Receive Date: 20050316
  Receipt Date: 20050316
  Transmission Date: 20050727
  Serious: Yes (Life-Threatening)
  Sender: FDA-Public Use
  Company Number: None

PATIENT
  Age: 49 Year
  Sex: Female
  Weight: 61.6892 kg

DRUGS (1)
  1. CELEBREX [Suspect]
     Indication: SPINAL COLUMN STENOSIS
     Dosage: 200 MG/DAILY

REACTIONS (2)
  - HEPATOCELLULAR DAMAGE [None]
  - KIDNEY ENLARGEMENT [None]
